FAERS Safety Report 20560956 (Version 1)
Quarter: 2022Q1

REPORT INFORMATION
  Report Type: Spontaneous
  Country: CN (occurrence: None)
  Receive Date: 20220307
  Receipt Date: 20220307
  Transmission Date: 20220423
  Serious: Yes (Other)
  Sender: FDA-Public Use
  Company Number: CN-ROCHE-3038295

PATIENT
  Age: 67 Year
  Sex: Male

DRUGS (26)
  1. RITUXIMAB [Suspect]
     Active Substance: RITUXIMAB
     Indication: Diffuse large B-cell lymphoma
     Route: 065
     Dates: start: 20190521
  2. RITUXIMAB [Suspect]
     Active Substance: RITUXIMAB
     Dosage: ON DAY0
     Route: 065
     Dates: start: 202004, end: 202009
  3. RITUXIMAB [Suspect]
     Active Substance: RITUXIMAB
     Route: 065
     Dates: start: 202103
  4. OBINUTUZUMAB [Suspect]
     Active Substance: OBINUTUZUMAB
     Indication: Diffuse large B-cell lymphoma
     Route: 042
     Dates: start: 202111
  5. OBINUTUZUMAB [Suspect]
     Active Substance: OBINUTUZUMAB
     Route: 042
     Dates: start: 2022
  6. CYCLOPHOSPHAMIDE [Concomitant]
     Active Substance: CYCLOPHOSPHAMIDE
     Indication: Diffuse large B-cell lymphoma
     Dates: start: 20190418
  7. CYCLOPHOSPHAMIDE [Concomitant]
     Active Substance: CYCLOPHOSPHAMIDE
     Dates: start: 20190521
  8. CYCLOPHOSPHAMIDE [Concomitant]
     Active Substance: CYCLOPHOSPHAMIDE
     Dates: start: 202004, end: 202009
  9. VINDESINE [Concomitant]
     Active Substance: VINDESINE
     Indication: Diffuse large B-cell lymphoma
     Dates: start: 20190418
  10. VINDESINE [Concomitant]
     Active Substance: VINDESINE
     Dates: start: 20190521
  11. VINDESINE [Concomitant]
     Active Substance: VINDESINE
     Dates: start: 202004, end: 202009
  12. PIRARUBICIN [Concomitant]
     Active Substance: PIRARUBICIN
     Indication: Diffuse large B-cell lymphoma
     Dosage: 35MG FOR DAY1, 20MG FOR DAY2
     Dates: start: 20190418
  13. PIRARUBICIN [Concomitant]
     Active Substance: PIRARUBICIN
     Dates: start: 20190521
  14. EPIRUBICIN [Concomitant]
     Active Substance: EPIRUBICIN
     Indication: Diffuse large B-cell lymphoma
     Dates: start: 202004, end: 202009
  15. PREDNISOLONE [Concomitant]
     Active Substance: PREDNISOLONE
     Indication: Diffuse large B-cell lymphoma
     Dates: start: 20190418
  16. PREDNISOLONE [Concomitant]
     Active Substance: PREDNISOLONE
     Dates: start: 20190521
  17. PREDNISOLONE [Concomitant]
     Active Substance: PREDNISOLONE
     Dosage: FOR DAY1-5
     Dates: start: 202004, end: 202009
  18. GEMCITABINE [Concomitant]
     Active Substance: GEMCITABINE
     Indication: Diffuse large B-cell lymphoma
     Dates: start: 202103
  19. DEXAMETHASONE [Concomitant]
     Active Substance: DEXAMETHASONE
     Indication: Diffuse large B-cell lymphoma
     Dates: start: 202103
  20. CISPLATIN [Concomitant]
     Active Substance: CISPLATIN
     Indication: Diffuse large B-cell lymphoma
     Dates: start: 202103
  21. ZANUBRUTINIB [Concomitant]
     Active Substance: ZANUBRUTINIB
     Indication: Diffuse large B-cell lymphoma
     Route: 048
     Dates: start: 202103
  22. IBRUTINIB [Concomitant]
     Active Substance: IBRUTINIB
     Indication: Diffuse large B-cell lymphoma
     Route: 048
     Dates: start: 2021
  23. LENALIDOMIDE [Concomitant]
     Active Substance: LENALIDOMIDE
     Indication: Diffuse large B-cell lymphoma
     Route: 048
     Dates: start: 202111
  24. LENALIDOMIDE [Concomitant]
     Active Substance: LENALIDOMIDE
     Route: 048
     Dates: start: 2022
  25. ORELABRUTINIB [Concomitant]
     Active Substance: ORELABRUTINIB
     Indication: Diffuse large B-cell lymphoma
     Dates: start: 202111
  26. ORELABRUTINIB [Concomitant]
     Active Substance: ORELABRUTINIB
     Dates: start: 2022

REACTIONS (3)
  - Soft tissue infection [Recovered/Resolved]
  - Peripheral artery thrombosis [Unknown]
  - Off label use [Unknown]
